FAERS Safety Report 4902312-1 (Version None)
Quarter: 2006Q1

REPORT INFORMATION
  Report Type: 
  Country: None (occurrence: None)
  Receive Date: 20060202
  Receipt Date: 20060202
  Transmission Date: 20060701
  Serious: Yes (Hospitalization, Other)
  Sender: FDA-Public Use
  Company Number: None

PATIENT
  Sex: Female
  Weight: 122.7 kg

DRUGS (3)
  1. TAXOL [Suspect]
     Indication: BREAST CANCER
     Dosage: 348 MG
     Route: 042
     Dates: start: 20060110, end: 20060110
  2. ALEVE [Concomitant]
  3. DEXAMETHASONE SODIUM PHOSPHATE [Concomitant]

REACTIONS (9)
  - ABDOMINAL PAIN [None]
  - ANASTOMOTIC ULCER PERFORATION [None]
  - CONSTIPATION [None]
  - DYSPNOEA [None]
  - ELECTROCARDIOGRAM T WAVE ABNORMAL [None]
  - NEUTROPHIL COUNT INCREASED [None]
  - ORAL INTAKE REDUCED [None]
  - SHOULDER PAIN [None]
  - WHITE BLOOD CELL COUNT INCREASED [None]
